FAERS Safety Report 7445394-8 (Version None)
Quarter: 2011Q2

REPORT INFORMATION
  Report Type: 
  Country: None (occurrence: None)
  Receive Date: 20110429
  Receipt Date: 20110420
  Transmission Date: 20111010
  Serious: Yes (Hospitalization)
  Sender: FDA-Public Use
  Company Number: US-BAXTER-2011BH012531

PATIENT
  Age: 68 Year
  Sex: Female

DRUGS (4)
  1. EXTRANEAL [Suspect]
     Indication: PERITONEAL DIALYSIS
     Route: 033
  2. NORVASC [Concomitant]
     Indication: BLOOD PRESSURE
     Route: 048
  3. LISINOPRIL [Concomitant]
     Indication: BLOOD PRESSURE
     Route: 048
  4. DIANEAL [Suspect]
     Indication: PERITONEAL DIALYSIS
     Route: 033

REACTIONS (5)
  - VOMITING [None]
  - DEHYDRATION [None]
  - CLOSTRIDIUM TEST POSITIVE [None]
  - HYPOTENSION [None]
  - DIARRHOEA [None]
